FAERS Safety Report 15659167 (Version 1)
Quarter: 2018Q4

REPORT INFORMATION
  Report Type: Report from Study
  Country: US (occurrence: US)
  Receive Date: 20181127
  Receipt Date: 20181127
  Transmission Date: 20190205
  Serious: Yes (Hospitalization)
  Sender: FDA-Public Use
  Company Number: US-BIOGEN-2018BI00662587

PATIENT
  Age: 32 Year
  Sex: Female

DRUGS (5)
  1. GABAPENTIN. [Concomitant]
     Active Substance: GABAPENTIN
     Indication: SEIZURE
     Route: 048
     Dates: start: 2011
  2. LEXAPRO [Concomitant]
     Active Substance: ESCITALOPRAM OXALATE
     Indication: CLAUSTROPHOBIA
     Route: 048
  3. TECFIDERA [Suspect]
     Active Substance: DIMETHYL FUMARATE
     Dosage: MAINTENANCE DOSE
     Route: 048
  4. PHENYTOIN. [Concomitant]
     Active Substance: PHENYTOIN
     Indication: SEIZURE
     Route: 048
     Dates: start: 2011
  5. TECFIDERA [Suspect]
     Active Substance: DIMETHYL FUMARATE
     Indication: MULTIPLE SCLEROSIS
     Dosage: STARTING DOSE
     Route: 048

REACTIONS (3)
  - Nuclear magnetic resonance imaging abnormal [Not Recovered/Not Resolved]
  - Petit mal epilepsy [Recovered/Resolved]
  - Product dose omission [Recovered/Resolved]

NARRATIVE: CASE EVENT DATE: 20171102
